FAERS Safety Report 6908408-7 (Version None)
Quarter: 2010Q3

REPORT INFORMATION
  Report Type: 
  Country: None (occurrence: None)
  Receive Date: 20100805
  Receipt Date: 20100728
  Transmission Date: 20110219
  Serious: Yes (Other)
  Sender: FDA-Public Use
  Company Number: US-SANOFI-AVENTIS-2010SA044599

PATIENT
  Age: 84 Year
  Sex: Female

DRUGS (3)
  1. LANTUS [Suspect]
     Indication: DIABETES MELLITUS
     Route: 058
     Dates: start: 20091231
  2. ALL OTHER THERAPEUTIC PRODUCTS [Concomitant]
  3. CALCIUM [Concomitant]

REACTIONS (2)
  - FALL [None]
  - HIP FRACTURE [None]
